FAERS Safety Report 4602703-2 (Version None)
Quarter: 2005Q1

REPORT INFORMATION
  Report Type: 
  Country: None (occurrence: None)
  Receive Date: 20050307
  Receipt Date: 20050217
  Transmission Date: 20050727
  Serious: Yes (Hospitalization)
  Sender: FDA-Public Use
  Company Number: TO5-USA-00286-01

PATIENT
  Age: 43 Year
  Sex: Female
  Weight: 76.2043 kg

DRUGS (16)
  1. LEXAPRO [Suspect]
     Indication: MAJOR DEPRESSION
     Dosage: 10 MG QD PO
     Route: 048
     Dates: start: 20040610, end: 20050117
  2. LEXAPRO [Suspect]
     Indication: PROPHYLAXIS
     Dosage: 10 MG QD PO
     Route: 048
     Dates: start: 20040610, end: 20050117
  3. LEXAPRO [Suspect]
     Indication: PROPHYLAXIS
     Dosage: 5 MG QD PO
     Route: 048
     Dates: start: 20040624, end: 20040709
  4. LEXAPRO [Suspect]
     Indication: MAJOR DEPRESSION
     Dosage: 10 MG QD PO
     Route: 048
     Dates: start: 20040513, end: 20040623
  5. LEXAPRO [Suspect]
     Indication: PROPHYLAXIS
     Dosage: 10 MG QD PO
     Route: 048
     Dates: start: 20040513, end: 20040623
  6. TRAZODONE [Suspect]
     Indication: INSOMNIA
     Dates: start: 20040701
  7. PHENERGAN [Concomitant]
  8. MULTI-VITAMINS [Concomitant]
  9. CALCIUM GLUCONATE [Concomitant]
  10. PEGINTERFERON ALPHA 2A (INTERFERON ALFA-2A) [Concomitant]
  11. RIBAVIRIN [Concomitant]
  12. IBUPROFEN [Concomitant]
  13. PEPTO-BISMOL (BISMUTH SUBSALICYLATE) [Concomitant]
  14. ADVIL [Concomitant]
  15. LORTAB [Concomitant]
  16. OTC ANTACID [Concomitant]

REACTIONS (17)
  - ANAEMIA [None]
  - CHEST PAIN [None]
  - CONSTIPATION [None]
  - DIARRHOEA [None]
  - DYSPNOEA [None]
  - ELECTROCARDIOGRAM QT PROLONGED [None]
  - ELECTROCARDIOGRAM ST-T SEGMENT ABNORMAL [None]
  - GRANULOCYTOPENIA [None]
  - HYPERHIDROSIS [None]
  - HYPOKALAEMIA [None]
  - MYOCARDIAL ISCHAEMIA [None]
  - PERICARDITIS [None]
  - SINUS BRADYCARDIA [None]
  - SUPRAVENTRICULAR EXTRASYSTOLES [None]
  - TACHYPNOEA [None]
  - TORSADE DE POINTES [None]
  - VENTRICULAR TACHYCARDIA [None]
